FAERS Safety Report 8302109-9 (Version None)
Quarter: 2012Q2

REPORT INFORMATION
  Report Type: 
  Country: None (occurrence: None)
  Receive Date: 20120420
  Receipt Date: 20120409
  Transmission Date: 20120825
  Serious: Yes (Disabling)
  Sender: FDA-Public Use
  Company Number: US-PERRIGO-12US003119

PATIENT
  Sex: Female
  Weight: 56.689 kg

DRUGS (2)
  1. HYDROQUINONE RX 4% 7C7 [Suspect]
     Indication: PIGMENTATION DISORDER
     Dosage: ONE APPLICATION TO ENTIRE FACE, SINGLE
     Route: 061
     Dates: start: 20120326, end: 20120326
  2. HYDROQUINONE RX 4% 7C7 [Suspect]
     Dosage: ONE APPLICATION TO ENTIRE FACE, SINGLE
     Route: 061
     Dates: start: 20111001, end: 20111001

REACTIONS (7)
  - STRESS [None]
  - APPLICATION SITE PRURITUS [None]
  - APPLICATION SITE SWELLING [None]
  - APPLICATION SITE SCAB [None]
  - APPLICATION SITE SCAR [None]
  - APPLICATION SITE PAIN [None]
  - APPLICATION SITE ERYTHEMA [None]
